FAERS Safety Report 4503836-1 (Version None)
Quarter: 2004Q4

REPORT INFORMATION
  Report Type: 
  Country: None (occurrence: None)
  Receive Date: 20041117
  Receipt Date: 20041108
  Transmission Date: 20050328
  Serious: Yes (Other)
  Sender: FDA-Public Use
  Company Number: US-MERCK-0411USA01547

PATIENT
  Sex: Female

DRUGS (2)
  1. VIOXX [Suspect]
     Indication: ARTHRITIS
     Route: 048
     Dates: start: 19990101, end: 20040401
  2. VIOXX [Suspect]
     Route: 048
     Dates: start: 19990101, end: 20040401

REACTIONS (1)
  - CEREBROVASCULAR ACCIDENT [None]
